FAERS Safety Report 9421798 (Version 1)
Quarter: 2013Q3

REPORT INFORMATION
  Report Type: Spontaneous
  Country: AR (occurrence: AR)
  Receive Date: 20130726
  Receipt Date: 20130726
  Transmission Date: 20140515
  Serious: Yes (Other)
  Sender: FDA-Public Use
  Company Number: AR-AMGEN-ARGSP2013052158

PATIENT
  Age: 54 Year
  Sex: Female

DRUGS (2)
  1. ENBREL [Suspect]
     Indication: RHEUMATOID ARTHRITIS
     Dosage: 50 MG, WEEKLY
     Route: 065
     Dates: start: 20110506
  2. METHOTREXATE SODIUM [Concomitant]
     Dosage: UNK UNK, UNK

REACTIONS (3)
  - Arthropathy [Recovering/Resolving]
  - Postoperative wound complication [Recovering/Resolving]
  - Osteomyelitis [Recovering/Resolving]
